FAERS Safety Report 5093154-8 (Version None)
Quarter: 2006Q3

REPORT INFORMATION
  Report Type: 
  Country: None (occurrence: None)
  Receive Date: 20060830
  Receipt Date: 20060822
  Transmission Date: 20061208
  Serious: Yes (Disabling)
  Sender: FDA-Public Use
  Company Number: CA-ROCHE-460678

PATIENT
  Age: 21 Year
  Sex: Female

DRUGS (1)
  1. TORADOL [Suspect]
     Route: 048
     Dates: start: 20050815, end: 20060521

REACTIONS (10)
  - DISTURBANCE IN ATTENTION [None]
  - DYSPNOEA [None]
  - HEADACHE [None]
  - HEARING IMPAIRED [None]
  - HEART RATE INCREASED [None]
  - MUSCLE SPASMS [None]
  - TREMOR [None]
  - UNEVALUABLE EVENT [None]
  - VERTIGO [None]
  - VISUAL ACUITY REDUCED [None]
